FAERS Safety Report 6645030-4 (Version None)
Quarter: 2010Q1

REPORT INFORMATION
  Report Type: 
  Country: None (occurrence: None)
  Receive Date: 20100322
  Receipt Date: 20100317
  Transmission Date: 20100710
  Serious: Yes (Life-Threatening, Hospitalization)
  Sender: FDA-Public Use
  Company Number: PHHY2010GB16078

PATIENT
  Age: 52 Year
  Sex: Female

DRUGS (9)
  1. CLOZAPINE [Suspect]
     Indication: SCHIZOPHRENIA
     Dosage: 150 MG, BID
     Dates: start: 20020520, end: 20100219
  2. ACETAMINOPHEN AND CODEINE PHOSPHATE [Concomitant]
     Dosage: UNK
  3. DILTIAZEM HYDROCHLORIDE [Concomitant]
     Dosage: 200 MG, QD
  4. ESTRADIOL [Concomitant]
     Dosage: 25 MG, QD
     Route: 067
  5. FERROUS SULFATE TAB [Concomitant]
     Dosage: 200 MG, TID
  6. HYOSCINE [Concomitant]
     Dosage: 150 UG, UNK
  7. OMEPRAZOLE [Concomitant]
     Dosage: 20 MG, QD
  8. VALPROATE SODIUM [Concomitant]
     Dosage: 1000 MG, QD
  9. VENLAFAXINE [Concomitant]
     Dosage: 150 MG, QD

REACTIONS (5)
  - APPENDICECTOMY [None]
  - FAECES HARD [None]
  - GASTROINTESTINAL HYPOMOTILITY [None]
  - INTESTINAL DILATATION [None]
  - LAPAROTOMY [None]
